FAERS Safety Report 5422618-X (Version None)
Quarter: 2007Q3

REPORT INFORMATION
  Report Type: 
  Country: None (occurrence: None)
  Receive Date: 20070730
  Receipt Date: 20060901
  Transmission Date: 20080115
  Serious: Yes (Hospitalization, Other)
  Sender: FDA-Public Use
  Company Number: 200615093BWH

PATIENT
  Age: 31 Year
  Sex: Female

DRUGS (5)
  1. AVELOX [Suspect]
     Indication: SINUSITIS
     Dosage: ONCE, ORAL
     Route: 048
     Dates: start: 20060808
  2. ATENOLOL [Concomitant]
  3. PAXIL CR [Concomitant]
  4. ALLEGRA [Concomitant]
  5. LEVONORGESTREL E/ETHINYLESTRADIOL [Concomitant]

REACTIONS (5)
  - ANAPHYLACTIC REACTION [None]
  - CYANOSIS [None]
  - HYPOTENSION [None]
  - URTICARIA [None]
  - WHEEZING [None]
